FAERS Safety Report 5800837-8 (Version None)
Quarter: 2008Q3

REPORT INFORMATION
  Report Type: 
  Country: None (occurrence: None)
  Receive Date: 20080703
  Receipt Date: 20080626
  Transmission Date: 20090109
  Serious: Yes (Hospitalization)
  Sender: FDA-Public Use
  Company Number: US-GENENTECH-262883

PATIENT
  Age: 64 Year
  Sex: Female
  Weight: 64.399 kg

DRUGS (4)
  1. BEVACIZUMAB [Suspect]
     Indication: BREAST CANCER
     Dosage: 10 MG/KG, Q2W
     Route: 042
     Dates: start: 20071207, end: 20080613
  2. DOXORUBICIN HCL [Suspect]
     Indication: DRUG USE FOR UNKNOWN INDICATION
  3. CYCLOPHOSPHAMIDE [Suspect]
     Indication: DRUG USE FOR UNKNOWN INDICATION
  4. LEVAQUIN [Concomitant]
     Indication: PROPHYLAXIS
     Dosage: 500 MG, QD
     Dates: start: 20080611

REACTIONS (2)
  - NEUTROPENIA [None]
  - PYREXIA [None]
